FAERS Safety Report 10086672 (Version 1)
Quarter: 2014Q2

REPORT INFORMATION
  Report Type: Report from Study
  Country: US (occurrence: US)
  Receive Date: 20140418
  Receipt Date: 20140418
  Transmission Date: 20141212
  Serious: Yes (Hospitalization, Other)
  Sender: FDA-Public Use
  Company Number: US-ABBVIE-14P-163-1223505-00

PATIENT
  Age: 67 Year
  Sex: Female
  Weight: 74.2 kg

DRUGS (2)
  1. ABT-888 [Suspect]
     Indication: BREAST CANCER
     Dosage: CYCLE = 21 DAYS
     Route: 048
     Dates: start: 20120329
  2. CARBOPLATIN [Concomitant]
     Indication: BREAST CANCER
     Dosage: AUC= 5 IV OVE 30 MINS ON DAY 1
     Dates: start: 20120529

REACTIONS (2)
  - Weight decreased [Recovered/Resolved]
  - Salpingo-oophorectomy unilateral [Recovered/Resolved]
